FAERS Safety Report 10237672 (Version 1)
Quarter: 2014Q2

REPORT INFORMATION
  Report Type: Spontaneous
  Country: GB (occurrence: GB)
  Receive Date: 20140616
  Receipt Date: 20140616
  Transmission Date: 20141212
  Serious: Yes (Hospitalization, Disabling)
  Sender: FDA-Public Use
  Company Number: GB-009507513-1406GBR006670

PATIENT
  Age: 25 Year
  Sex: Female

DRUGS (1)
  1. ETONOGESTREL [Suspect]
     Indication: CONTRACEPTION
     Route: 059
     Dates: start: 2014, end: 20140605

REACTIONS (4)
  - Hemiplegia [Unknown]
  - Cerebrovascular accident [Recovering/Resolving]
  - Migraine with aura [Recovering/Resolving]
  - Hypoaesthesia [Unknown]
